FAERS Safety Report 5163121-4 (Version None)
Quarter: 2006Q4

REPORT INFORMATION
  Report Type: 
  Country: None (occurrence: None)
  Receive Date: 20061201
  Receipt Date: 20010628
  Transmission Date: 20070319
  Serious: Yes (Life-Threatening, Hospitalization, Other)
  Sender: FDA-Public Use
  Company Number: FR-ABBOTT-01P-056-0108576-00

PATIENT
  Sex: Female
  Weight: 0.9 kg

DRUGS (10)
  1. NORVIR [Suspect]
     Indication: DRUG EXPOSURE DURING PREGNANCY
  2. ZIDOVUDINE [Suspect]
     Indication: PROPHYLAXIS AGAINST HIV INFECTION
     Route: 042
     Dates: start: 20010515, end: 20010515
  3. PORACTANT ALPHA [Concomitant]
     Indication: DRUG USE FOR UNKNOWN INDICATION
     Dates: start: 20010516, end: 20010516
  4. FENTANYL [Concomitant]
     Indication: DRUG USE FOR UNKNOWN INDICATION
     Dates: start: 20010515
  5. NETILMICIN SULFATE [Concomitant]
     Indication: DRUG USE FOR UNKNOWN INDICATION
     Dates: start: 20010515
  6. METRONIDAZOLE [Concomitant]
     Indication: DRUG USE FOR UNKNOWN INDICATION
     Dates: start: 20010518, end: 20010520
  7. METHADONE HYDROCHLORIDE [Concomitant]
     Indication: DRUG EXPOSURE DURING PREGNANCY
     Route: 048
  8. CEFOTAXIME SODIUM [Concomitant]
     Indication: DRUG USE FOR UNKNOWN INDICATION
     Dates: start: 20010515
  9. AMOXICILLIN TRIHYDRATE [Concomitant]
     Indication: DRUG USE FOR UNKNOWN INDICATION
     Dates: start: 20010515
  10. URSODEOXYCHOLIC ACID [Concomitant]
     Indication: DRUG EXPOSURE DURING PREGNANCY
     Dates: start: 20010401

REACTIONS (19)
  - ABDOMINAL DISTENSION [None]
  - ANAEMIA [None]
  - ANAEMIA MACROCYTIC [None]
  - ASCITES [None]
  - ASPIRATION [None]
  - BLOOD CREATININE INCREASED [None]
  - BLOOD SODIUM DECREASED [None]
  - FOETAL GROWTH RETARDATION [None]
  - GASTROINTESTINAL DISORDER [None]
  - HAEMORRHAGE NEONATAL [None]
  - HYPERTRIGLYCERIDAEMIA [None]
  - NEONATAL RESPIRATORY DISTRESS SYNDROME [None]
  - NERVOUS SYSTEM DISORDER [None]
  - NEUTROPENIA [None]
  - PERITONITIS [None]
  - PREMATURE BABY [None]
  - RESTLESSNESS [None]
  - UNEVALUABLE EVENT [None]
  - WEIGHT DECREASE NEONATAL [None]
